FAERS Safety Report 7231885-1 (Version None)
Quarter: 2011Q1

REPORT INFORMATION
  Report Type: 
  Country: None (occurrence: None)
  Receive Date: 20110118
  Receipt Date: 20110110
  Transmission Date: 20110831
  Serious: Yes (Death, Hospitalization, Other)
  Sender: FDA-Public Use
  Company Number: TR-TYCO HEALTHCARE/MALLINCKRODT-T201100041

PATIENT
  Age: 83 Year
  Sex: Male

DRUGS (1)
  1. EXALGO [Suspect]
     Indication: PAIN
     Dosage: 8 MG, SINGLE
     Route: 048
     Dates: start: 20101216, end: 20101216

REACTIONS (3)
  - ARRHYTHMIA [None]
  - RESPIRATORY DEPRESSION [None]
  - DEATH [None]
